FAERS Safety Report 6932404-7 (Version None)
Quarter: 2010Q3

REPORT INFORMATION
  Report Type: 
  Country: None (occurrence: None)
  Receive Date: 20100817
  Receipt Date: 20100803
  Transmission Date: 20110219
  Serious: Yes (Hospitalization, Other)
  Sender: FDA-Public Use
  Company Number: 1-22987886

PATIENT
  Age: 62 Year
  Sex: Female
  Weight: 55.7924 kg

DRUGS (39)
  1. METOCLOPRAMIDE [Suspect]
     Indication: GASTROOESOPHAGEAL REFLUX DISEASE
     Dosage: 1 TABLET 4 TIMES/DAY, ORAL
     Route: 048
     Dates: start: 20060210
  2. METOCLOPRAMIDE 10 MG TABLET (ACTAVIS/PUREPAC) [Suspect]
     Indication: GASTROOESOPHAGEAL REFLUX DISEASE
     Dosage: 1 TABLET  4 TIMES/DAY, ORAL
  3. METOCLOPRAMIDE 10 MG TABLET (TEVA) [Suspect]
     Indication: GASTROOESOPHAGEAL REFLUX DISEASE
     Dosage: 10 MG 4 TIMES/DAY, ORAL
     Route: 048
     Dates: start: 20070618, end: 20081215
  4. METOCLOPRAMIDE 10 MG TABLET (QUALITEST) [Suspect]
     Indication: GASTROOESOPHAGEAL REFLUX DISEASE
     Dosage: 10 MG 4 TIMES/DAY, ORAL
     Route: 048
     Dates: start: 20080913, end: 20090824
  5. VISICOL [Concomitant]
  6. PEPCID [Concomitant]
  7. PRILOSEC [Concomitant]
  8. CARTIA XT [Concomitant]
  9. FENTANYL CITRATE [Concomitant]
  10. PROTONIX [Concomitant]
  11. PANGESTYME EC [Concomitant]
  12. PANCREASE [Concomitant]
  13. PANCRELIPASE [Concomitant]
  14. WELCHOL [Concomitant]
  15. METOPROLOL TARTRATE [Concomitant]
  16. ALPRAZOLAM [Concomitant]
  17. ZOFRAN [Concomitant]
  18. TRAMADOL HCL [Concomitant]
  19. LEVOTHYROXINE [Concomitant]
  20. PRAVASTATIN [Concomitant]
  21. GEMFIBROZIL [Concomitant]
  22. CYPROHEPTADINE HCL [Concomitant]
  23. NORTRIPTYLINE HCL [Concomitant]
  24. OXYCODONE HCL AND ACETAMINOPHEN [Concomitant]
  25. AMITIZA [Concomitant]
  26. ALBUTEROL [Concomitant]
  27. PROMETHAZINE [Concomitant]
  28. CEPHALEXIN [Concomitant]
  29. HYOSCYAMINE ER [Concomitant]
  30. OXYBUTYNIN [Concomitant]
  31. SODIUM BICARBONATE [Concomitant]
  32. CIPROFLOXACIN [Concomitant]
  33. LISINOPRIL [Concomitant]
  34. VITAMIN D [Concomitant]
  35. LOVENOX [Concomitant]
  36. WARFARIN SODIUM [Concomitant]
  37. COMPAZINE [Concomitant]
  38. NEPRO DIETARY SUPPLEMENT [Concomitant]
  39. BENADRYL [Concomitant]

REACTIONS (36)
  - ABDOMINAL ADHESIONS [None]
  - ABDOMINAL PAIN [None]
  - ASTHENIA [None]
  - ASTHMA [None]
  - BALANCE DISORDER [None]
  - CACHEXIA [None]
  - CHEST DISCOMFORT [None]
  - COLITIS ISCHAEMIC [None]
  - DIARRHOEA [None]
  - DYSARTHRIA [None]
  - DYSPHAGIA [None]
  - DYSPNOEA [None]
  - DYSPNOEA EXERTIONAL [None]
  - EAR PAIN [None]
  - EATING DISORDER [None]
  - EMBOLISM ARTERIAL [None]
  - FAECES HARD [None]
  - FATIGUE [None]
  - GASTRITIS [None]
  - HAEMATOCHEZIA [None]
  - HYPERSOMNIA [None]
  - ILEUS [None]
  - LARGE INTESTINAL ULCER [None]
  - MUSCLE SPASMS [None]
  - OBSTRUCTION GASTRIC [None]
  - OSTEOPOROSIS [None]
  - PANCREATIC INSUFFICIENCY [None]
  - PEPTIC ULCER [None]
  - POST PROCEDURAL HAEMORRHAGE [None]
  - PRESBYOESOPHAGUS [None]
  - RENAL FAILURE [None]
  - TARDIVE DYSKINESIA [None]
  - TREMOR [None]
  - TRISMUS [None]
  - VITAMIN D DECREASED [None]
  - WEIGHT DECREASED [None]
